FAERS Safety Report 12926630 (Version 1)
Quarter: 2016Q4

REPORT INFORMATION
  Report Type: Spontaneous
  Country: SE (occurrence: SE)
  Receive Date: 20161109
  Receipt Date: 20161109
  Transmission Date: 20170207
  Serious: Yes (Hospitalization, Other)
  Sender: FDA-Public Use
  Company Number: SE-TEVA-709618ACC

PATIENT
  Age: 20 Year
  Sex: Male

DRUGS (1)
  1. STESOLID [Suspect]
     Active Substance: DIAZEPAM
     Dates: start: 20161013, end: 20161013

REACTIONS (2)
  - Intentional self-injury [Recovered/Resolved]
  - Toxicity to various agents [Recovered/Resolved]

NARRATIVE: CASE EVENT DATE: 20161013
